FAERS Safety Report 11077954 (Version 1)
Quarter: 2015Q2

REPORT INFORMATION
  Report Type: Spontaneous
  Country: US (occurrence: US)
  Receive Date: 20150430
  Receipt Date: 20150430
  Transmission Date: 20150821
  Serious: No
  Sender: FDA-Public Use
  Company Number: US-009507513-1504USA022649

PATIENT
  Age: 49 Year
  Sex: Male
  Weight: 93.42 kg

DRUGS (1)
  1. JANUVIA [Suspect]
     Active Substance: SITAGLIPTIN PHOSPHATE
     Indication: BLOOD GLUCOSE DECREASED
     Dosage: 100 MG X 1 DAILY TAKEN BY MOUTH
     Route: 048
     Dates: start: 20140306

REACTIONS (6)
  - Asthenia [Unknown]
  - Irritability [Unknown]
  - Confusional state [Unknown]
  - Abdominal pain upper [Unknown]
  - Groin pain [Unknown]
  - Fatigue [Unknown]

NARRATIVE: CASE EVENT DATE: 20140403
